FAERS Safety Report 25343850 (Version 1)
Quarter: 2025Q2

REPORT INFORMATION
  Report Type: Spontaneous
  Country: US (occurrence: US)
  Receive Date: 20250521
  Receipt Date: 20250521
  Transmission Date: 20250717
  Serious: No
  Sender: SANOFI AVENTIS
  Company Number: US-SA-2025SA141905

PATIENT
  Sex: Female
  Weight: 62.73 kg

DRUGS (4)
  1. KEVZARA [Suspect]
     Active Substance: SARILUMAB
     Indication: Rheumatoid arthritis
     Dosage: 200 MG, QOW
     Route: 058
  2. DYMISTA [Concomitant]
     Active Substance: AZELASTINE HYDROCHLORIDE\FLUTICASONE PROPIONATE
  3. XOLAIR [Concomitant]
     Active Substance: OMALIZUMAB
  4. D1000 [Concomitant]

REACTIONS (1)
  - Lymph gland infection [Not Recovered/Not Resolved]
